FAERS Safety Report 8482998-8 (Version None)
Quarter: 2012Q3

REPORT INFORMATION
  Report Type: 
  Country: None (occurrence: None)
  Receive Date: 20120702
  Receipt Date: 20120620
  Transmission Date: 20120928
  Serious: Yes (Other)
  Sender: FDA-Public Use
  Company Number: US-JNJFOC-20120614044

PATIENT

DRUGS (2)
  1. ETHINYL ESTRADIOL AND NORETHINDRONE [Suspect]
     Indication: EXPOSURE DURING BREAST FEEDING
     Dosage: 1MG OF NORETHINDRONE AND 0.035MG OF ETHINYL ESTRDIOL
     Route: 063
  2. NORETHINDRONE [Suspect]
     Indication: EXPOSURE DURING BREAST FEEDING
     Route: 063

REACTIONS (3)
  - FEEDING DISORDER NEONATAL [None]
  - NEONATAL INFECTION [None]
  - BREAST FEEDING [None]
